FAERS Safety Report 19645375 (Version 2)
Quarter: 2021Q3

REPORT INFORMATION
  Report Type: Report from Study
  Country: US (occurrence: US)
  Receive Date: 20210802
  Receipt Date: 20210809
  Transmission Date: 20211014
  Serious: Yes (Hospitalization)
  Sender: FDA-Public Use
  Company Number: US-ALNYLAM PHARMACEUTICALS, INC.-ALN-2021-001788

PATIENT

DRUGS (1)
  1. LUMASIRAN. [Suspect]
     Active Substance: LUMASIRAN
     Indication: PRIMARY HYPEROXALURIA
     Dosage: 6 MILLIGRAM/KILOGRAM, Q3M
     Route: 058
     Dates: start: 20210227

REACTIONS (2)
  - Product dose omission issue [Unknown]
  - Hospitalisation [Unknown]
